FAERS Safety Report 10063764 (Version 3)
Quarter: 2014Q2

REPORT INFORMATION
  Report Type: Spontaneous
  Country: JP (occurrence: JP)
  Receive Date: 20140408
  Receipt Date: 20140530
  Transmission Date: 20141212
  Serious: Yes (Other)
  Sender: FDA-Public Use
  Company Number: JP-ROCHE-1376317

PATIENT
  Age: 73 Year
  Sex: Female

DRUGS (5)
  1. BONVIVA [Suspect]
     Indication: OSTEOPOROSIS
     Route: 042
     Dates: start: 201310, end: 20140318
  2. EDIROL [Concomitant]
     Dosage: DOSAGE IS UNCERTAIN.
     Route: 048
     Dates: start: 20131122
  3. ADALAT [Concomitant]
     Dosage: DOSAGE IS UNCERTAIN.
     Route: 065
     Dates: start: 20140218
  4. MECOBALAMIN [Concomitant]
     Dosage: DOSAGE IS UNCERTAIN.
     Route: 065
     Dates: start: 20140218
  5. LYRICA [Concomitant]
     Dosage: DOSAGE IS UNCERTAIN.
     Route: 065
     Dates: start: 20140218

REACTIONS (5)
  - Injection site swelling [Unknown]
  - Induration [Recovering/Resolving]
  - Injection site erythema [Recovering/Resolving]
  - Pyrexia [Recovering/Resolving]
  - Headache [Recovering/Resolving]
